FAERS Safety Report 23821685 (Version 4)
Quarter: 2024Q2

REPORT INFORMATION
  Report Type: Spontaneous
  Country: IE (occurrence: IE)
  Receive Date: 20240506
  Receipt Date: 20240604
  Transmission Date: 20240716
  Serious: Yes (Other)
  Sender: FDA-Public Use
  Company Number: IE-PFIZER INC-202400099794

PATIENT
  Age: 36 Year
  Sex: Female
  Weight: 53.8 kg

DRUGS (5)
  1. PROSTIN E2 [Suspect]
     Active Substance: DINOPROSTONE
     Indication: Labour induction
     Dosage: 2 MG
     Route: 067
     Dates: start: 20240419, end: 20240419
  2. LABETALOL [Concomitant]
     Active Substance: LABETALOL\LABETALOL HYDROCHLORIDE
     Indication: Blood pressure increased
     Dosage: 200 MG, 3X/DAY
  3. PROCHLORPERAZINE [Concomitant]
     Active Substance: PROCHLORPERAZINE
     Dosage: 12.5 MG
  4. LEVOTHYROXINE [Concomitant]
     Active Substance: LEVOTHYROXINE\LEVOTHYROXINE SODIUM
     Dosage: 125 UG, 1X/DAY
  5. MEPERIDINE [Concomitant]
     Active Substance: MEPERIDINE
     Dosage: 100 MG

REACTIONS (3)
  - Postpartum haemorrhage [Recovering/Resolving]
  - Uterine hyperstimulation [Recovered/Resolved with Sequelae]
  - Haemorrhage in pregnancy [Recovered/Resolved with Sequelae]

NARRATIVE: CASE EVENT DATE: 20240419
